FAERS Safety Report 16190680 (Version 2)
Quarter: 2019Q2

REPORT INFORMATION
  Report Type: Spontaneous
  Country: FR (occurrence: FR)
  Receive Date: 20190412
  Receipt Date: 20190425
  Transmission Date: 20190711
  Serious: Yes (Life-Threatening, Hospitalization, Other)
  Sender: FDA-Public Use
  Company Number: FR-MYLANLABS-2019M1034802

PATIENT
  Age: 63 Year
  Sex: Male
  Weight: 78 kg

DRUGS (7)
  1. FENTANYL. [Suspect]
     Active Substance: FENTANYL
     Indication: PRODUCT USED FOR UNKNOWN INDICATION
     Dosage: 200 MICROGRAM (200 ?G, UNK)UNSPECIFIED, 6-8 PER DAY
     Route: 048
     Dates: end: 20150611
  2. THALIDOMIDE [Suspect]
     Active Substance: THALIDOMIDE
     Indication: CHEMOTHERAPY
     Dosage: UNK
     Route: 065
  3. DUROGESIC [Suspect]
     Active Substance: FENTANYL
     Indication: PRODUCT USED FOR UNKNOWN INDICATION
     Dosage: 1 DOSAGE FORM, QD (UNK, TID)
     Route: 062
     Dates: start: 20150611, end: 20150611
  4. VELCADE [Suspect]
     Active Substance: BORTEZOMIB
     Indication: CHEMOTHERAPY
     Dosage: UNK
     Route: 065
  5. LOVENOX [Concomitant]
     Active Substance: ENOXAPARIN SODIUM
     Indication: PRODUCT USED FOR UNKNOWN INDICATION
     Dosage: 0.4 MILLILITER, QD
     Route: 058
  6. DEXAMETHASONE. [Suspect]
     Active Substance: DEXAMETHASONE
     Indication: CHEMOTHERAPY
     Dosage: UNK
     Route: 065
  7. VALACICLOVIR [Concomitant]
     Active Substance: VALACYCLOVIR HYDROCHLORIDE
     Indication: PRODUCT USED FOR UNKNOWN INDICATION
     Dosage: 1000 MILLIGRAM, QD (1 IN THE MORNING AND 1 IN THE EVENING)

REACTIONS (2)
  - Dyspnoea [Recovered/Resolved]
  - Hypercapnic coma [Recovered/Resolved]

NARRATIVE: CASE EVENT DATE: 20150611
